FAERS Safety Report 8552416-X (Version None)
Quarter: 2012Q3

REPORT INFORMATION
  Report Type: 
  Country: None (occurrence: None)
  Receive Date: 20120718
  Receipt Date: 20120705
  Transmission Date: 20120928
  Serious: Yes (Hospitalization)
  Sender: FDA-Public Use
  Company Number: 2012PV000041

PATIENT
  Age: 63 Year
  Sex: Female

DRUGS (27)
  1. GENTAMICIN [Concomitant]
  2. FLUCONAZOLE [Concomitant]
  3. VINCRISTINE [Concomitant]
  4. AMIKACIN [Concomitant]
  5. HEPARIN [Concomitant]
  6. CYCLOPHOSPHAMIDE [Concomitant]
  7. VALACYCLOVIR HYDROCHLORIDE [Concomitant]
  8. PYOSTACINE [Concomitant]
  9. IMIPENEM AND CILASTATIN SODIUM [Concomitant]
  10. VFEND [Concomitant]
  11. DEPOCYT [Suspect]
     Indication: ACUTE LYMPHOCYTIC LEUKAEMIA
     Dosage: 40 MG, INTH
     Route: 037
     Dates: start: 20120507, end: 20120524
  12. MESNA [Concomitant]
  13. FLAGYL [Concomitant]
  14. VANCOMYCIN [Concomitant]
  15. GLEEVEC [Suspect]
     Indication: ACUTE LYMPHOCYTIC LEUKAEMIA
     Dosage: 400 MG, QD
     Dates: start: 20120510, end: 20120526
  16. COTRIM [Concomitant]
  17. CIPROFLOXACIN HYDROCHLORIDE [Concomitant]
  18. AMPHOTERICIN B [Concomitant]
  19. VIBRAMYCIN [Concomitant]
  20. ROCEPHIN [Concomitant]
  21. METHOTREXATE SODIUM [Suspect]
     Indication: ACUTE LYMPHOCYTIC LEUKAEMIA
     Dosage: 15 MG, INTH
     Route: 037
     Dates: start: 20120507, end: 20120524
  22. METHYLPREDNISOLONE [Concomitant]
  23. IDARUBICIN HCL [Concomitant]
  24. ASPEGIC 1000 [Concomitant]
  25. COLIMYCIN [Concomitant]
  26. TAZOBACTAM [Concomitant]
  27. ZYVOX [Concomitant]

REACTIONS (6)
  - POSTERIOR REVERSIBLE ENCEPHALOPATHY SYNDROME [None]
  - SUBARACHNOID HAEMORRHAGE [None]
  - LEUKOENCEPHALOPATHY [None]
  - NEUROTOXICITY [None]
  - COMA [None]
  - ENCEPHALOPATHY [None]
